FAERS Safety Report 10209983 (Version 1)
Quarter: 2014Q2

REPORT INFORMATION
  Report Type: Spontaneous
  Country: US (occurrence: None)
  Receive Date: 20140528
  Receipt Date: 20140528
  Transmission Date: 20141212
  Serious: Yes (Death)
  Sender: FDA-Public Use
  Company Number: 2354439

PATIENT
  Age: 75 Year
  Sex: Male

DRUGS (2)
  1. DOBUTAMINE HYDROCHLORIDE [Suspect]
     Indication: STRESS ECHOCARDIOGRAM
     Dosage: /MIN
     Route: 041
  2. ASPIRIN [Concomitant]

REACTIONS (5)
  - Brain herniation [None]
  - Cerebral haemorrhage [None]
  - Blood pressure increased [None]
  - Heart rate increased [None]
  - Headache [None]
